FAERS Safety Report 16444752 (Version 1)
Quarter: 2019Q2

REPORT INFORMATION
  Report Type: Spontaneous
  Country: US (occurrence: US)
  Receive Date: 20190508
  Receipt Date: 20190508
  Transmission Date: 20190711
  Serious: No
  Sender: FDA-Public Use
  Company Number: None

PATIENT
  Sex: Male
  Weight: 91.63 kg

DRUGS (1)
  1. COSENTYX [Suspect]
     Active Substance: SECUKINUMAB
     Indication: RHEUMATOID ARTHRITIS
     Dosage: INJECT 150MG (1 PEN) SUBCUTANEOUSLY AT DAY 28 (DOSE 5) THEN EVERY 4 WEEKS AS DIRECTED?
     Route: 058
     Dates: start: 201905

REACTIONS (2)
  - Pain [None]
  - Surgery [None]
